FAERS Safety Report 10621743 (Version 1)
Quarter: 2014Q4

REPORT INFORMATION
  Report Type: Spontaneous
  Country: US (occurrence: None)
  Receive Date: 20141201
  Receipt Date: 20141201
  Transmission Date: 20150529
  Serious: Yes (Other)
  Sender: FDA-Public Use
  Company Number: None

PATIENT
  Age: 57 Year
  Sex: Male

DRUGS (2)
  1. XARELTO [Suspect]
     Active Substance: RIVAROXABAN
     Indication: HYPERCOAGULATION
     Route: 048
     Dates: start: 20140625, end: 201410
  2. XARELTO [Suspect]
     Active Substance: RIVAROXABAN
     Indication: POST THROMBOTIC SYNDROME
     Route: 048
     Dates: start: 20140625, end: 201410

REACTIONS (1)
  - Thrombosis [None]

NARRATIVE: CASE EVENT DATE: 201410
